FAERS Safety Report 20030232 (Version 1)
Quarter: 2021Q4

REPORT INFORMATION
  Report Type: Report from Study
  Country: US (occurrence: US)
  Receive Date: 20211103
  Receipt Date: 20211103
  Transmission Date: 20220303
  Serious: Yes (Death)
  Sender: FDA-Public Use
  Company Number: US-MYLANLABS-2021M1080340

PATIENT
  Age: 63 Year
  Sex: Female

DRUGS (6)
  1. TRAMADOL [Suspect]
     Active Substance: TRAMADOL
     Indication: Product used for unknown indication
     Dosage: UNK
     Route: 065
  2. IBUPROFEN [Suspect]
     Active Substance: IBUPROFEN
     Indication: Product used for unknown indication
     Dosage: UNK
     Route: 065
  3. ACETYLCYSTEINE [Suspect]
     Active Substance: ACETYLCYSTEINE
     Indication: Toxicity to various agents
     Dosage: UNK
     Route: 065
  4. NALOXONE [Suspect]
     Active Substance: NALOXONE
     Indication: Toxicity to various agents
     Dosage: UNK
     Route: 065
  5. HYDROCODONE [Suspect]
     Active Substance: HYDROCODONE
     Indication: Product used for unknown indication
     Dosage: UNK
     Route: 065
  6. NALMEFENE [Suspect]
     Active Substance: NALMEFENE
     Indication: Toxicity to various agents
     Dosage: UNK
     Route: 065

REACTIONS (8)
  - Toxicity to various agents [Fatal]
  - Coma [Fatal]
  - Hepatotoxicity [Fatal]
  - Hypotension [Fatal]
  - Acute lung injury [Fatal]
  - Acute respiratory distress syndrome [Fatal]
  - Rhabdomyolysis [Fatal]
  - Drug ineffective [Fatal]
